FAERS Safety Report 4750585-0 (Version None)
Quarter: 2005Q3

REPORT INFORMATION
  Report Type: 
  Country: None (occurrence: None)
  Receive Date: 20050823
  Receipt Date: 20050816
  Transmission Date: 20060218
  Serious: Yes (Other)
  Sender: FDA-Public Use
  Company Number: PHNU2005DE02885

PATIENT
  Age: 31 Year
  Sex: Female

DRUGS (3)
  1. CLOZARIL [Suspect]
     Dosage: UP TO 200 MG, QD
     Route: 048
     Dates: start: 19970101
  2. MARCUMAR [Suspect]
     Indication: THROMBOSIS
     Route: 048
     Dates: start: 20050701
  3. PERAZINE [Concomitant]
     Route: 065

REACTIONS (4)
  - DRUG INTERACTION [None]
  - FRACTURE [None]
  - PROTHROMBIN TIME SHORTENED [None]
  - THROMBOSIS [None]
